FAERS Safety Report 19795383 (Version 1)
Quarter: 2021Q3

REPORT INFORMATION
  Report Type: Spontaneous
  Country: US (occurrence: US)
  Receive Date: 20210903
  Receipt Date: 20210903
  Transmission Date: 20211014
  Serious: Yes (Death)
  Sender: FDA-Public Use
  Company Number: None

PATIENT
  Age: 73 Year
  Sex: Female
  Weight: 52 kg

DRUGS (10)
  1. LACTULOSE. [Concomitant]
     Active Substance: LACTULOSE
  2. MIRALAX [Concomitant]
     Active Substance: POLYETHYLENE GLYCOL 3350
  3. GLIPIZIDE. [Concomitant]
     Active Substance: GLIPIZIDE
  4. CALCIUM CARBONATE. [Concomitant]
     Active Substance: CALCIUM CARBONATE
  5. MIRTAZAPINE. [Concomitant]
     Active Substance: MIRTAZAPINE
  6. KEYTRUDA [Suspect]
     Active Substance: PEMBROLIZUMAB
     Indication: ADENOCARCINOMA METASTATIC
     Route: 042
     Dates: start: 20210709
  7. BISOPROLOL [Concomitant]
     Active Substance: BISOPROLOL
  8. DILTIAZEM. [Concomitant]
     Active Substance: DILTIAZEM
  9. METFORMIN [Concomitant]
     Active Substance: METFORMIN HYDROCHLORIDE
  10. FERROUS SULFATE. [Concomitant]
     Active Substance: FERROUS SULFATE

REACTIONS (16)
  - Abdominal pain [None]
  - Decubitus ulcer [None]
  - Asthenia [None]
  - Sepsis [None]
  - Fatigue [None]
  - Decreased appetite [None]
  - Dyspnoea [None]
  - Small intestinal obstruction [None]
  - Intestinal perforation [None]
  - Nausea [None]
  - Constipation [None]
  - Acute kidney injury [None]
  - Dysphagia [None]
  - Chest discomfort [None]
  - Urine output decreased [None]
  - Visual impairment [None]

NARRATIVE: CASE EVENT DATE: 20210712
